FAERS Safety Report 4440038-1 (Version None)
Quarter: 2004Q3

REPORT INFORMATION
  Report Type: 
  Country: None (occurrence: None)
  Receive Date: 20040902
  Receipt Date: 20040826
  Transmission Date: 20050211
  Serious: Yes (Hospitalization)
  Sender: FDA-Public Use
  Company Number: PHBS2004ZA11247

PATIENT
  Age: 14 Year
  Sex: Female

DRUGS (1)
  1. LIORESAL [Suspect]

REACTIONS (7)
  - AGITATION [None]
  - CIRCULATORY COLLAPSE [None]
  - COORDINATION ABNORMAL [None]
  - EXTRAOCULAR MUSCLE DISORDER [None]
  - NYSTAGMUS [None]
  - OVERDOSE [None]
  - RESPIRATORY DISORDER [None]
